FAERS Safety Report 9884846 (Version 1)
Quarter: 2014Q1

REPORT INFORMATION
  Report Type: Spontaneous
  Country: US (occurrence: None)
  Receive Date: 20140207
  Receipt Date: 20140207
  Transmission Date: 20141002
  Serious: Yes (Hospitalization)
  Sender: FDA-Public Use
  Company Number: None

PATIENT
  Age: 26 Year
  Sex: Female
  Weight: 85.28 kg

DRUGS (1)
  1. NEULASTA 6MG AMGEN [Suspect]
     Indication: NEUTROPENIA
     Route: 058
     Dates: start: 20140204

REACTIONS (7)
  - Rash erythematous [None]
  - Swelling face [None]
  - Angioedema [None]
  - Diarrhoea [None]
  - Nausea [None]
  - Vomiting [None]
  - Generalised oedema [None]
